FAERS Safety Report 6283884-4 (Version None)
Quarter: 2009Q3

REPORT INFORMATION
  Report Type: 
  Country: None (occurrence: None)
  Receive Date: 20090723
  Receipt Date: 20090723
  Transmission Date: 20100115
  Serious: Yes (Death, Hospitalization)
  Sender: FDA-Public Use
  Company Number: None

PATIENT
  Sex: Female
  Weight: 87.2 kg

DRUGS (1)
  1. CYTARABINE [Suspect]
     Dosage: 15.9 G
     Dates: end: 20090703

REACTIONS (4)
  - BRAIN HERNIATION [None]
  - FEBRILE NEUTROPENIA [None]
  - RESPIRATORY FAILURE [None]
  - SUBARACHNOID HAEMORRHAGE [None]
